FAERS Safety Report 6913997-2 (Version None)
Quarter: 2010Q3

REPORT INFORMATION
  Report Type: 
  Country: None (occurrence: None)
  Receive Date: 20100809
  Receipt Date: 20100726
  Transmission Date: 20110219
  Serious: Yes (Hospitalization)
  Sender: FDA-Public Use
  Company Number: PHHY2010JP48168

PATIENT
  Age: 66 Year
  Sex: Male
  Weight: 155 kg

DRUGS (15)
  1. VOLTAREN [Suspect]
     Route: 048
  2. EVAMYL [Suspect]
  3. EURODIN [Suspect]
  4. SERENACE [Suspect]
  5. TAGAMET [Suspect]
  6. URSO 250 [Suspect]
  7. OPALMON [Suspect]
  8. LASIX [Suspect]
  9. ALDACTONE [Suspect]
  10. LOXONIN [Suspect]
  11. CALONAL [Suspect]
  12. VANCOMYCIN [Suspect]
  13. IMIPENEM [Suspect]
  14. CILASTATIN [Suspect]
  15. GLYCERIN [Suspect]
     Route: 054

REACTIONS (25)
  - ACTIVATED PARTIAL THROMBOPLASTIN TIME PROLONGED [None]
  - ANAEMIA [None]
  - CANDIDIASIS [None]
  - DISSEMINATED INTRAVASCULAR COAGULATION [None]
  - DYSPNOEA [None]
  - ERYTHEMA MULTIFORME [None]
  - HEPATIC ENZYME INCREASED [None]
  - HYPOALBUMINAEMIA [None]
  - HYPOXIA [None]
  - IMMUNOGLOBULINS INCREASED [None]
  - INCREASED BRONCHIAL SECRETION [None]
  - MOUTH HAEMORRHAGE [None]
  - NIKOLSKY'S SIGN [None]
  - ORAL MUCOSA EROSION [None]
  - PANCYTOPENIA [None]
  - PNEUMONIA [None]
  - PSEUDOMONAS INFECTION [None]
  - PYREXIA [None]
  - RASH [None]
  - RESPIRATORY DISTRESS [None]
  - SEPSIS [None]
  - SKIN EROSION [None]
  - SKIN LESION [None]
  - STAPHYLOCOCCAL INFECTION [None]
  - TOXIC EPIDERMAL NECROLYSIS [None]
